FAERS Safety Report 7889251-1 (Version None)
Quarter: 2011Q4

REPORT INFORMATION
  Report Type: 
  Country: None (occurrence: None)
  Receive Date: 20111103
  Receipt Date: 20111031
  Transmission Date: 20120403
  Serious: Yes (Death)
  Sender: FDA-Public Use
  Company Number: GB-MERCK-0807GBR00130

PATIENT
  Age: 75 Year
  Sex: Male

DRUGS (3)
  1. CLOPIDOGREL BISULFATE [Suspect]
     Route: 048
  2. ZETIA [Suspect]
     Route: 048
  3. INDAPAMIDE [Concomitant]
     Route: 065

REACTIONS (2)
  - ACUTE HEPATIC FAILURE [None]
  - COAGULOPATHY [None]
